FAERS Safety Report 7962466-X (Version None)
Quarter: 2011Q4

REPORT INFORMATION
  Report Type: 
  Country: None (occurrence: None)
  Receive Date: 20111207
  Receipt Date: 20111130
  Transmission Date: 20120403
  Serious: Yes (Congenital Anomaly)
  Sender: FDA-Public Use
  Company Number: US-GLAXOSMITHKLINE-A0874694A

PATIENT
  Sex: Female
  Weight: 3.4 kg

DRUGS (7)
  1. XANAX [Concomitant]
     Route: 064
     Dates: start: 20040211
  2. TOBACCO [Concomitant]
     Route: 064
  3. PAXIL [Suspect]
     Indication: DEPRESSION
     Route: 064
     Dates: start: 20040209, end: 20040501
  4. VALTREX [Concomitant]
     Route: 064
     Dates: start: 20040315
  5. PHENERGAN [Concomitant]
     Route: 064
  6. AMBIEN [Concomitant]
     Route: 064
     Dates: start: 20040209
  7. MULTI-VITAMINS [Concomitant]
     Route: 064

REACTIONS (2)
  - CARDIAC MURMUR [None]
  - FOETAL EXPOSURE DURING PREGNANCY [None]
